FAERS Safety Report 9206263 (Version 5)
Quarter: 2013Q2

REPORT INFORMATION
  Report Type: Spontaneous
  Country: US (occurrence: US)
  Receive Date: 20130403
  Receipt Date: 20130618
  Transmission Date: 20140414
  Serious: No
  Sender: FDA-Public Use
  Company Number: US-PFIZER INC-2013100931

PATIENT
  Age: 57 Year
  Sex: Male
  Weight: 95.24 kg

DRUGS (19)
  1. SUTENT [Suspect]
     Indication: PANCREATIC CARCINOMA
     Dosage: 37.5 MG (12.5MG AND 25MG),DAILY
     Dates: start: 20130320
  2. SUTENT [Suspect]
     Indication: PANCREATIC NEUROENDOCRINE TUMOUR
     Dosage: UNK
     Dates: start: 20130325
  3. FLOMAX [Concomitant]
     Dosage: UNK
  4. AFINITOR [Concomitant]
     Dosage: UNK
  5. LOVAZA [Concomitant]
     Dosage: UNK
  6. LOPRESSOR [Concomitant]
     Dosage: UNK
  7. ACYCLOVIR [Concomitant]
     Dosage: UNK
  8. XANAX [Concomitant]
     Dosage: UNK
  9. OXYCODONE [Concomitant]
     Dosage: UNK
  10. OXYCONTIN [Concomitant]
     Dosage: UNK
  11. ZOLOFT [Concomitant]
     Dosage: UNK
  12. NORVASC [Concomitant]
     Dosage: UNK
  13. COZAAR [Concomitant]
     Dosage: UNK
  14. PRO-AIR [Concomitant]
     Dosage: UNK
  15. ADVAIR [Concomitant]
     Dosage: UNK
  16. COLACE [Concomitant]
     Dosage: UNK
  17. VITAMIN D [Concomitant]
     Dosage: UNK
  18. ZOFRAN [Concomitant]
     Dosage: UNK
  19. OXYGEN [Concomitant]
     Dosage: UNK

REACTIONS (8)
  - Thrombosis [Unknown]
  - Nausea [Unknown]
  - Oral pain [Unknown]
  - Dysgeusia [Unknown]
  - Dyspepsia [Unknown]
  - Fatigue [Unknown]
  - Disease progression [Unknown]
  - Pancreatic neuroendocrine tumour [Unknown]
